FAERS Safety Report 12706963 (Version 6)
Quarter: 2017Q1

REPORT INFORMATION
  Report Type: Spontaneous
  Country: US (occurrence: US)
  Receive Date: 20160901
  Receipt Date: 20170125
  Transmission Date: 20170428
  Serious: Yes (Congenital Anomaly, Other)
  Sender: FDA-Public Use
  Company Number: PHEH2016US021923

PATIENT
  Sex: Female

DRUGS (1)
  1. ZOFRAN ODT [Suspect]
     Active Substance: ONDANSETRON HYDROCHLORIDE
     Indication: FOETAL EXPOSURE DURING PREGNANCY
     Dosage: MOTHER DOSE: 8 MG QD
     Route: 064

REACTIONS (10)
  - Foetal exposure during pregnancy [Unknown]
  - Cardiac murmur [Unknown]
  - Atrial septal defect [Unknown]
  - Injury [Unknown]
  - Eczema [Unknown]
  - Dehydration [Unknown]
  - Left-to-right cardiac shunt [Unknown]
  - Cardiomegaly [Unknown]
  - Ear infection [Unknown]
  - Diarrhoea [Unknown]
